FAERS Safety Report 14802073 (Version 1)
Quarter: 2018Q2

REPORT INFORMATION
  Report Type: Spontaneous
  Country: FR (occurrence: FR)
  Receive Date: 20180424
  Receipt Date: 20180424
  Transmission Date: 20180711
  Serious: Yes (Hospitalization, Other)
  Sender: FDA-Public Use
  Company Number: FR-MYLANLABS-2018M1024993

PATIENT
  Age: 39 Year
  Sex: Female

DRUGS (4)
  1. KETOPROFENE                        /00321701/ [Concomitant]
     Active Substance: KETOPROFEN
     Indication: PERIOPERATIVE ANALGESIA
     Dosage: 100 MG, UNK
     Route: 042
  2. PARACETAMOL [Concomitant]
     Active Substance: ACETAMINOPHEN
     Indication: PERIOPERATIVE ANALGESIA
     Dosage: 1 G, UNK
     Route: 042
  3. SUFENTANIL [Suspect]
     Active Substance: SUFENTANIL
     Indication: PERIOPERATIVE ANALGESIA
     Dosage: 15 G, UNK
  4. MORPHINE [Suspect]
     Active Substance: MORPHINE
     Indication: POSTOPERATIVE ANALGESIA
     Dosage: 4 MG, UNK
     Route: 042

REACTIONS (1)
  - Intestinal pseudo-obstruction [Recovered/Resolved]
